FAERS Safety Report 6994684-1 (Version None)
Quarter: 2010Q3

REPORT INFORMATION
  Report Type: 
  Country: None (occurrence: None)
  Receive Date: 20100915
  Receipt Date: 20100827
  Transmission Date: 20110219
  Serious: Yes (Death, Hospitalization)
  Sender: FDA-Public Use
  Company Number: 2010AC000501

PATIENT
  Age: 65 Year
  Sex: Female
  Weight: 75.7507 kg

DRUGS (66)
  1. DIGOXIN [Suspect]
     Indication: PRODUCT USED FOR UNKNOWN INDICATION
     Dosage: 0.25 MG;QD;PO
     Route: 048
     Dates: start: 20061003
  2. DIGOXIN [Suspect]
     Indication: PRODUCT USED FOR UNKNOWN INDICATION
     Dosage: 0.125 MG;DAILY;PO
     Route: 048
  3. DIGOXIN [Suspect]
     Indication: PRODUCT USED FOR UNKNOWN INDICATION
     Dosage: 0.25 MG;QD;PO
     Route: 048
     Dates: start: 20070201
  4. INSULIN [Concomitant]
  5. SPIRONOLACTONE [Concomitant]
  6. TICLOPIDINE HCL [Concomitant]
  7. TIOTROPIUM [Concomitant]
  8. ASPIRIN [Concomitant]
  9. FUROSEMIDE [Concomitant]
  10. PREDNISONE [Concomitant]
  11. LOSARTAN POTASSIUM [Concomitant]
  12. SALMETEROL [Concomitant]
  13. BUDESONIDE [Concomitant]
  14. ACETAMINOPHEN [Concomitant]
  15. METOPROLOL TARTRATE [Concomitant]
  16. ACETYLCYSTEINE [Concomitant]
  17. ALPRAZOLAM [Concomitant]
  18. FAMOTIDINE [Concomitant]
  19. CHOLESTYRAMINE [Concomitant]
  20. DILTIAZEM [Concomitant]
  21. LACTOBACILLUS [Concomitant]
  22. NITROGLYCERIN [Concomitant]
  23. KLOR-CON [Concomitant]
  24. SKELAXIN [Concomitant]
  25. WARFARIN [Concomitant]
  26. LEVOTHYROXINE SODIUM [Concomitant]
  27. TRAMADOL [Concomitant]
  28. LOVENOX [Concomitant]
  29. AMBIEN [Concomitant]
  30. LORAZEPAM [Concomitant]
  31. VANCOMYCIN HCL [Concomitant]
  32. HUMALOG [Concomitant]
  33. MORPHINE [Concomitant]
  34. NYSTATIN [Concomitant]
  35. PAROXETINE HCL [Concomitant]
  36. THEOPHYLLINE [Concomitant]
  37. CITALOPRAM HYDROBROMIDE [Concomitant]
  38. FUROSEMIDE [Concomitant]
  39. MILK OF MAGNESIA TAB [Concomitant]
  40. MAGNESIUM-ALUMINUM [Concomitant]
  41. NITROGLYCERIN [Concomitant]
  42. ALBUTEROL [Concomitant]
  43. CYCLOBENZAPRINE [Concomitant]
  44. OXYCODONE AND ACETAMINOPHEN [Concomitant]
  45. FORMOTEROL FUMARATE [Concomitant]
  46. LEVALBUTEROL HCL [Concomitant]
  47. MELATONIN [Concomitant]
  48. METAXALONE [Concomitant]
  49. DARVOCET [Concomitant]
  50. QUINIDINE HCL [Concomitant]
  51. SPIRIVA [Concomitant]
  52. ULTRAM [Concomitant]
  53. ATROVENT [Concomitant]
  54. CULTURELLE [Concomitant]
  55. COLACE [Concomitant]
  56. HUMULIN R [Concomitant]
  57. LOPERAMIDE [Concomitant]
  58. POTASSIUM [Concomitant]
  59. ALUMINUM HYDROXIDE/MAGNESIUM [Concomitant]
  60. SENNA [Concomitant]
  61. DYDROXIDE/SIMETHICONE [Concomitant]
  62. DOCUSATE-SENNS [Concomitant]
  63. GLYBURIDE [Concomitant]
  64. CLOPIDOGREL [Concomitant]
  65. IPRATROPIUM BROMIDE [Concomitant]
  66. NYSTATIN [Concomitant]

REACTIONS (55)
  - ABDOMINAL PAIN [None]
  - ARRHYTHMIA [None]
  - ASTHMA [None]
  - BACK PAIN [None]
  - BLOOD GLUCOSE INCREASED [None]
  - BLOOD POTASSIUM DECREASED [None]
  - BRAIN NATRIURETIC PEPTIDE INCREASED [None]
  - BRONCHITIS [None]
  - CARDIOACTIVE DRUG LEVEL INCREASED [None]
  - CARDIOMEGALY [None]
  - CHILLS [None]
  - CLOSTRIDIUM DIFFICILE COLITIS [None]
  - COUGH [None]
  - DEAFNESS [None]
  - DEEP VEIN THROMBOSIS [None]
  - DEPRESSION [None]
  - DIARRHOEA [None]
  - DIVERTICULITIS [None]
  - DYSPNOEA [None]
  - DYSPNOEA PAROXYSMAL NOCTURNAL [None]
  - ECONOMIC PROBLEM [None]
  - FATIGUE [None]
  - GAIT DISTURBANCE [None]
  - GRANULOMA [None]
  - HEART RATE INCREASED [None]
  - HEPATIC FUNCTION ABNORMAL [None]
  - HYPERHIDROSIS [None]
  - HYPOKINESIA [None]
  - HYPOTENSION [None]
  - INCREASED APPETITE [None]
  - INJURY [None]
  - INTERNATIONAL NORMALISED RATIO INCREASED [None]
  - KYPHOSIS [None]
  - LACTIC ACIDOSIS [None]
  - LYMPHADENOPATHY [None]
  - MITRAL VALVE INCOMPETENCE [None]
  - MUSCLE SPASMS [None]
  - MYOCARDIAL INFARCTION [None]
  - NAUSEA [None]
  - ORTHOPNOEA [None]
  - OSTEOPENIA [None]
  - PERICARDIAL EFFUSION [None]
  - PLEURAL EFFUSION [None]
  - PNEUMONIA [None]
  - PULMONARY EMBOLISM [None]
  - RENAL FAILURE ACUTE [None]
  - RESPIRATORY DISTRESS [None]
  - RHINORRHOEA [None]
  - SOMNOLENCE [None]
  - TACHYCARDIA [None]
  - TACHYPNOEA [None]
  - UPPER RESPIRATORY TRACT INFECTION [None]
  - VISUAL ACUITY REDUCED [None]
  - VOMITING [None]
  - WEIGHT DECREASED [None]
